FAERS Safety Report 4764832-2 (Version None)
Quarter: 2005Q3

REPORT INFORMATION
  Report Type: 
  Country: None (occurrence: None)
  Receive Date: 20050907
  Receipt Date: 20050826
  Transmission Date: 20060218
  Serious: Yes (Death, Other)
  Sender: FDA-Public Use
  Company Number: 2005121152

PATIENT
  Sex: Female

DRUGS (4)
  1. PROVERA [Suspect]
     Indication: HORMONE REPLACEMENT THERAPY
     Dates: start: 19930101, end: 19990101
  2. MEDROXYPROGESTERONE ACETATE [Suspect]
     Indication: HORMONE REPLACEMENT THERAPY
     Dates: start: 19930101, end: 19990101
  3. PREMARIN [Suspect]
     Indication: HORMONE REPLACEMENT THERAPY
     Dates: start: 19930101, end: 19990101
  4. CYCRIN [Suspect]
     Indication: HORMONE REPLACEMENT THERAPY
     Dates: start: 19930101, end: 19990101

REACTIONS (1)
  - BREAST CANCER FEMALE [None]
